FAERS Safety Report 6989582-3 (Version None)
Quarter: 2010Q3

REPORT INFORMATION
  Report Type: 
  Country: None (occurrence: None)
  Receive Date: 20100916
  Receipt Date: 20100114
  Transmission Date: 20110219
  Serious: Yes (Other)
  Sender: FDA-Public Use
  Company Number: DE-PFIZER INC-2009315621

PATIENT
  Age: 86 Year
  Sex: Female
  Weight: 50 kg

DRUGS (10)
  1. LYRICA [Suspect]
     Indication: GENERALISED ANXIETY DISORDER
     Dosage: 50 MG, 1X/DAY
     Route: 048
     Dates: start: 20091101
  2. RAMIPRIL [Suspect]
     Dosage: 5 OR 10MG
  3. VERAPAMIL [Concomitant]
  4. ASPIRIN [Concomitant]
     Dosage: 100 UNK, UNK
  5. THYRONAJOD [Concomitant]
  6. DIGOXIN [Concomitant]
  7. IDEOS [Concomitant]
  8. LEXOTANIL [Concomitant]
  9. MAGNESIUM [Concomitant]
     Dosage: 100 MG, UNK
  10. TRAVATAN [Concomitant]
     Route: 047

REACTIONS (6)
  - ALTERED STATE OF CONSCIOUSNESS [None]
  - ANXIETY DISORDER [None]
  - BLOOD PRESSURE DECREASED [None]
  - BLOOD PRESSURE INCREASED [None]
  - FALL [None]
  - PERIPHERAL COLDNESS [None]
